FAERS Safety Report 7088807-6 (Version None)
Quarter: 2010Q4

REPORT INFORMATION
  Report Type: 
  Country: None (occurrence: None)
  Receive Date: 20101108
  Receipt Date: 20101026
  Transmission Date: 20110411
  Serious: Yes (Hospitalization)
  Sender: FDA-Public Use
  Company Number: PHHY2010FR70359

PATIENT
  Sex: Male

DRUGS (2)
  1. SANDOSTATIN [Suspect]
     Indication: OESOPHAGEAL VARICES HAEMORRHAGE
     Dosage: 100 UG, BID
     Route: 058
     Dates: start: 20101001
  2. SANDOSTATIN [Suspect]
     Dosage: 100 UG, ONCE/SINGLE
     Route: 042
     Dates: start: 20101009

REACTIONS (1)
  - INCORRECT ROUTE OF DRUG ADMINISTRATION [None]
